FAERS Safety Report 5976316-4 (Version None)
Quarter: 2008Q4

REPORT INFORMATION
  Report Type: 
  Country: None (occurrence: None)
  Receive Date: 20081202
  Receipt Date: 20081124
  Transmission Date: 20090506
  Serious: No
  Sender: FDA-Public Use
  Company Number: US-B.I. PHARMACEUTICALS,INC./RIDGEFIELD-2008-BP-16169BP

PATIENT
  Sex: Female

DRUGS (8)
  1. SPIRIVA [Suspect]
     Indication: CHRONIC OBSTRUCTIVE PULMONARY DISEASE
     Dosage: 18MCG
     Route: 048
     Dates: start: 20071001
  2. ADVAIR HFA [Concomitant]
  3. METOPROLOL [Concomitant]
  4. OMEPRAZOLE [Concomitant]
  5. SINGULAIR [Concomitant]
  6. ZETIA [Concomitant]
  7. AVAPRO [Concomitant]
  8. ALBUTEROL [Concomitant]

REACTIONS (2)
  - DYSPNOEA [None]
  - FATIGUE [None]
